FAERS Safety Report 9393393 (Version 1)
Quarter: 2013Q3

REPORT INFORMATION
  Report Type: Spontaneous
  Country: US (occurrence: None)
  Receive Date: 20130709
  Receipt Date: 20130709
  Transmission Date: 20140515
  Serious: Yes (Life-Threatening, Hospitalization, Disabling, Other)
  Sender: FDA-Public Use
  Company Number: None

PATIENT
  Age: 62 Year
  Sex: Female
  Weight: 68.95 kg

DRUGS (12)
  1. MOVI PREP SOL 1055 (PEG-3350) [Suspect]
     Indication: COLONOSCOPY
     Dosage: HALF PM?HALF AM?BY MOUTH
     Route: 048
     Dates: start: 20130326, end: 20130327
  2. MOVI PREP SOL 1055 (PEG-3350) [Suspect]
     Indication: ENDOSCOPY
     Dosage: HALF PM?HALF AM?BY MOUTH
     Route: 048
     Dates: start: 20130326, end: 20130327
  3. CLOPIDOGREL [Concomitant]
  4. ZETIA [Concomitant]
  5. CRESTOR [Concomitant]
  6. AZOR [Concomitant]
  7. PANTOPRAZOLE SOD DR [Concomitant]
  8. ALPRAZOLAM [Concomitant]
  9. HYDROCODON [Concomitant]
  10. CALCIUM W/VITAMIN D [Concomitant]
  11. MELATONIN [Concomitant]
  12. D3 [Concomitant]

REACTIONS (6)
  - Asthenia [None]
  - Cardiac disorder [None]
  - Palpitations [None]
  - Blood potassium decreased [None]
  - Local swelling [None]
  - Renal failure [None]
